FAERS Safety Report 7799547-X (Version None)
Quarter: 2011Q4

REPORT INFORMATION
  Report Type: 
  Country: None (occurrence: None)
  Receive Date: 20111006
  Receipt Date: 20111006
  Transmission Date: 20120403
  Serious: Yes (Life-Threatening, Hospitalization)
  Sender: FDA-Public Use
  Company Number: None

PATIENT
  Sex: Female
  Weight: 93 kg

DRUGS (9)
  1. REGLAN [Concomitant]
     Route: 042
  2. FISH OIL [Concomitant]
     Route: 048
  3. ENALAPRIL MALEATE [Concomitant]
     Route: 048
  4. CALTRATE + D [Concomitant]
     Route: 048
  5. COLACE [Concomitant]
     Route: 048
  6. PRAVASTATIN [Concomitant]
     Route: 048
  7. PERCOCET [Concomitant]
     Route: 048
  8. XARELTO [Suspect]
     Indication: THROMBOSIS PROPHYLAXIS
     Dosage: 10 MG
     Route: 048
     Dates: start: 20110913, end: 20110915
  9. FLECAINIDE ACETATE [Concomitant]
     Route: 048

REACTIONS (4)
  - CONFUSIONAL STATE [None]
  - UPPER GASTROINTESTINAL HAEMORRHAGE [None]
  - HELICOBACTER TEST POSITIVE [None]
  - HYPOVOLAEMIC SHOCK [None]
